FAERS Safety Report 9294336 (Version 5)
Quarter: 2013Q3

REPORT INFORMATION
  Report Type: Spontaneous
  Country: US (occurrence: None)
  Receive Date: 20130514
  Receipt Date: 20130716
  Transmission Date: 20140515
  Serious: Yes (Other)
  Sender: FDA-Public Use
  Company Number: JPI-P-031488

PATIENT
  Age: 41 Year
  Sex: Female
  Weight: 83.46 kg

DRUGS (8)
  1. XYREM [Suspect]
     Indication: NARCOLEPSY
     Dosage: 4.5 GM (2.25 GM,2 IN 1 D)
     Route: 048
     Dates: start: 20120305, end: 2012
  2. XYREM [Suspect]
     Indication: SOMNOLENCE
     Dosage: 4.5 GM (2.25 GM,2 IN 1 D)
     Route: 048
     Dates: start: 20120305, end: 2012
  3. ARIPIPRAZOLE [Concomitant]
  4. ESCITALOPRAM OXALATE [Concomitant]
  5. VITAMIN B12 [Concomitant]
  6. ESTRADIOL [Concomitant]
  7. ACETAMINOPHEN/ HYDROCODONE BITARTRATE [Concomitant]
  8. HYDROCHLOROTHIAZIDE/ VALSARTAN [Concomitant]

REACTIONS (3)
  - Ovarian mass [None]
  - Weight increased [None]
  - Benign ovarian tumour [None]
